FAERS Safety Report 5585197-2 (Version None)
Quarter: 2008Q1

REPORT INFORMATION
  Report Type: 
  Country: None (occurrence: None)
  Receive Date: 20080109
  Receipt Date: 20080107
  Transmission Date: 20080703
  Serious: Yes (Life-Threatening, Hospitalization)
  Sender: FDA-Public Use
  Company Number: GB-BRISTOL-MYERS SQUIBB COMPANY-14031751

PATIENT
  Age: 71 Year
  Sex: Male

DRUGS (9)
  1. LISINOPRIL [Suspect]
     Indication: HYPERTENSION
     Route: 048
     Dates: end: 20071205
  2. ACETYLSALICYLIC ACID SRT [Suspect]
     Route: 065
     Dates: end: 20071205
  3. METFORMIN HCL [Suspect]
     Route: 065
     Dates: end: 20071205
  4. ATENOLOL [Suspect]
     Route: 065
     Dates: end: 20071205
  5. BENDROFLUMETHIAZIDE [Suspect]
     Dosage: STOPPED DUE TO LOW BLOOD PRESSURE
     Route: 065
     Dates: end: 20071205
  6. ATORVASTATIN [Concomitant]
     Route: 065
     Dates: end: 20071205
  7. NICORANDIL [Concomitant]
     Dosage: STOPPED DUE TO LOW BLOOD PRESSURE
     Route: 065
     Dates: end: 20071205
  8. OMEPRAZOLE [Concomitant]
     Route: 065
  9. ZOPICLONE [Concomitant]
     Route: 065

REACTIONS (2)
  - DEHYDRATION [None]
  - HYPERKALAEMIA [None]
